FAERS Safety Report 10449495 (Version 1)
Quarter: 2014Q3

REPORT INFORMATION
  Report Type: Spontaneous
  Country: IN (occurrence: None)
  Receive Date: 20140910
  Receipt Date: 20140910
  Transmission Date: 20150326
  Serious: Yes (Hospitalization)
  Sender: FDA-Public Use
  Company Number: UCM201408-000159

PATIENT
  Age: 52 Year
  Sex: Male

DRUGS (2)
  1. AMLODIPINE [Suspect]
     Active Substance: AMLODIPINE BESYLATE
     Indication: HYPERTENSION
  2. ATORVASTATIN (ATORVASTATIN) (ATORVASTATIN) [Suspect]
     Active Substance: ATORVASTATIN
     Indication: DYSLIPIDAEMIA
     Dosage: ONCE A DAY FOR TWO WEEKS

REACTIONS (5)
  - Rhabdomyolysis [None]
  - Tubulointerstitial nephritis [None]
  - Metabolic acidosis [None]
  - Renal tubular disorder [None]
  - Injury [None]
